FAERS Safety Report 8614317 (Version 4)
Quarter: 2014Q2

REPORT INFORMATION
  Report Type: Spontaneous
  Country: US (occurrence: US)
  Receive Date: 20120614
  Receipt Date: 20140401
  Transmission Date: 20141212
  Serious: No
  Sender: FDA-Public Use
  Company Number: US-ASTRAZENECA-2012SE35259

PATIENT
  Age: 68 Year
  Sex: Female
  Weight: 50.3 kg

DRUGS (22)
  1. NEXIUM [Suspect]
     Indication: ABDOMINAL PAIN UPPER
     Route: 048
     Dates: start: 2009, end: 2011
  2. NEXIUM [Suspect]
     Indication: GASTROOESOPHAGEAL REFLUX DISEASE
     Route: 048
     Dates: start: 2009, end: 2011
  3. NEXIUM [Suspect]
     Indication: DYSPEPSIA
     Route: 048
     Dates: start: 2009, end: 2011
  4. NEXIUM [Suspect]
     Indication: ABDOMINAL PAIN UPPER
     Route: 048
     Dates: start: 200905
  5. NEXIUM [Suspect]
     Indication: GASTROOESOPHAGEAL REFLUX DISEASE
     Route: 048
     Dates: start: 200905
  6. NEXIUM [Suspect]
     Indication: DYSPEPSIA
     Route: 048
     Dates: start: 200905
  7. NEXIUM [Suspect]
     Indication: ABDOMINAL PAIN UPPER
     Route: 048
     Dates: start: 2010, end: 2011
  8. NEXIUM [Suspect]
     Indication: GASTROOESOPHAGEAL REFLUX DISEASE
     Route: 048
     Dates: start: 2010, end: 2011
  9. NEXIUM [Suspect]
     Indication: DYSPEPSIA
     Route: 048
     Dates: start: 2010, end: 2011
  10. ALENDRONATE SODIUM [Concomitant]
     Dosage: 70 MG TABLET TAKE 1 TABLET BY MOUTH Q WEEK
     Dates: start: 20111109
  11. GABAPENTIN [Concomitant]
     Indication: PAIN
     Dates: start: 20111109
  12. LEVOTHYROXINE SODIUM [Concomitant]
     Dates: start: 20111109
  13. CALCIUM [Concomitant]
     Route: 048
     Dates: start: 20111109
  14. ETODOLAC [Concomitant]
     Indication: PAIN
     Route: 048
     Dates: start: 20111109
  15. HYDROXYZINE HCL [Concomitant]
     Indication: PRURITUS
     Dates: start: 20111109
  16. LISINOPRIL [Concomitant]
     Indication: BLOOD PRESSURE ABNORMAL
     Dates: start: 20111109
  17. ZANTAC [Concomitant]
  18. SIMVASTATIN [Concomitant]
  19. PREMARIN [Concomitant]
  20. PROTONIX [Concomitant]
  21. CALTRATE [Concomitant]
  22. LEVOTHYROID [Concomitant]

REACTIONS (11)
  - Osteoporosis [Unknown]
  - Multiple fractures [Unknown]
  - Osteopenia [Unknown]
  - Bone pain [Unknown]
  - Vaginal infection [Unknown]
  - Dacryostenosis acquired [Unknown]
  - Enteritis infectious [Unknown]
  - Decreased appetite [Unknown]
  - Weight decreased [Unknown]
  - Anxiety [Unknown]
  - Insomnia [Unknown]
